FAERS Safety Report 10733925 (Version 3)
Quarter: 2015Q2

REPORT INFORMATION
  Report Type: Spontaneous
  Country: US (occurrence: US)
  Receive Date: 20150123
  Receipt Date: 20150629
  Transmission Date: 20150821
  Serious: Yes (Other)
  Sender: FDA-Public Use
  Company Number: US-TEVA-536107USA

PATIENT
  Age: 35 Year
  Sex: Female
  Weight: 57.2 kg

DRUGS (1)
  1. PARAGARD T 380A [Suspect]
     Active Substance: COPPER
     Indication: CONTRACEPTION
     Route: 015
     Dates: start: 2009, end: 20150121

REACTIONS (7)
  - Fungal infection [Recovered/Resolved]
  - Smear cervix abnormal [Recovered/Resolved]
  - Device dislocation [Recovered/Resolved]
  - Device breakage [Recovered/Resolved with Sequelae]
  - Vaginal discharge [Not Recovered/Not Resolved]
  - Medical device complication [Not Recovered/Not Resolved]
  - Product difficult to remove [Not Recovered/Not Resolved]

NARRATIVE: CASE EVENT DATE: 20130524
